FAERS Safety Report 4552830-3 (Version None)
Quarter: 2005Q1

REPORT INFORMATION
  Report Type: 
  Country: None (occurrence: None)
  Receive Date: 20050114
  Receipt Date: 20040920
  Transmission Date: 20050727
  Serious: Yes (Life-Threatening, Hospitalization)
  Sender: FDA-Public Use
  Company Number: DE-NOVOPROD-239408

PATIENT
  Age: 45 Year
  Sex: Female
  Weight: 70 kg

DRUGS (1)
  1. NOVOSEVEN [Suspect]
     Indication: OPERATIVE HAEMORRHAGE
     Dosage: 360 KIU
     Dates: start: 20040820

REACTIONS (5)
  - HAEMODIALYSIS [None]
  - HYPERTENSION [None]
  - ILIAC VEIN THROMBOSIS [None]
  - PSEUDOMONAS INFECTION [None]
  - PULMONARY EMBOLISM [None]
